FAERS Safety Report 21749618 (Version 1)
Quarter: 2022Q4

REPORT INFORMATION
  Report Type: Report from Study
  Country: IT (occurrence: IT)
  Receive Date: 20221219
  Receipt Date: 20221219
  Transmission Date: 20230113
  Serious: Yes (Hospitalization)
  Sender: FDA-Public Use
  Company Number: None

PATIENT
  Age: 23 Year
  Sex: Female

DRUGS (3)
  1. ACETAMINOPHEN [Suspect]
     Active Substance: ACETAMINOPHEN
     Indication: Product used for unknown indication
     Dosage: 14 GRAM
     Route: 048
     Dates: start: 20220412, end: 20220412
  2. SURMONTIL [Suspect]
     Active Substance: TRIMIPRAMINE MALEATE
     Indication: Product used for unknown indication
     Dosage: 1 WHOLE BOX
     Route: 048
     Dates: start: 20220412, end: 20220412
  3. RIVOTRIL [Suspect]
     Active Substance: CLONAZEPAM
     Indication: Product used for unknown indication
     Dosage: 1 BOX
     Route: 048

REACTIONS (2)
  - Poisoning [Not Recovered/Not Resolved]
  - Drug abuse [Not Recovered/Not Resolved]

NARRATIVE: CASE EVENT DATE: 20220412
